FAERS Safety Report 9602717 (Version 2)
Quarter: 2013Q4

REPORT INFORMATION
  Report Type: Spontaneous
  Country: US (occurrence: US)
  Receive Date: 20131007
  Receipt Date: 20131015
  Transmission Date: 20140711
  Serious: Yes (Hospitalization, Other)
  Sender: FDA-Public Use
  Company Number: US-GILEAD-2013-0084740

PATIENT
  Sex: Female

DRUGS (5)
  1. LETAIRIS [Suspect]
     Indication: PULMONARY HYPERTENSION
     Dosage: 10 MG, UNK
     Dates: start: 20100908
  2. LETAIRIS [Suspect]
     Indication: CORONARY ARTERY DISEASE
  3. ADCIRCA [Concomitant]
  4. COUMADIN                           /00014802/ [Concomitant]
  5. VELETRI [Concomitant]

REACTIONS (1)
  - Device related infection [Unknown]
